FAERS Safety Report 11046807 (Version 1)
Quarter: 2015Q2

REPORT INFORMATION
  Report Type: Spontaneous
  Country: JP (occurrence: JP)
  Receive Date: 20150420
  Receipt Date: 20150420
  Transmission Date: 20150821
  Serious: Yes (Death)
  Sender: FDA-Public Use
  Company Number: JP-TEVA-556324ISR

PATIENT

DRUGS (2)
  1. CISPLATIN. [Suspect]
     Active Substance: CISPLATIN
     Indication: OESOPHAGEAL SQUAMOUS CELL CARCINOMA
     Dosage: 75 MG/ME2, ON DAYS 1, 2H INFUSION WITH A 4-WEEK INTERVAL
     Route: 050
  2. FLUOROURACIL. [Suspect]
     Active Substance: FLUOROURACIL
     Indication: OESOPHAGEAL SQUAMOUS CELL CARCINOMA
     Dosage: 1000 MG/ME2, ON DAYS 1-4 INFUSION; 4 WEEK INTERVAL
     Route: 050

REACTIONS (1)
  - Death [Fatal]
